FAERS Safety Report 5208624-9 (Version None)
Quarter: 2007Q1

REPORT INFORMATION
  Report Type: 
  Country: None (occurrence: None)
  Receive Date: 20070116
  Receipt Date: 20070110
  Transmission Date: 20070707
  Serious: Yes (Death, Hospitalization)
  Sender: FDA-Public Use
  Company Number: PHHO2006KR13249

PATIENT
  Age: 50 Year
  Sex: Female
  Weight: 52.1 kg

DRUGS (3)
  1. MYFORTIC [Suspect]
     Indication: RENAL TRANSPLANT
     Dosage: 1260 MG / DAY
     Route: 048
     Dates: start: 20060425
  2. MYFORTIC [Suspect]
     Dosage: 360 MG / DAY
     Route: 048
     Dates: start: 20060428
  3. CYMEVEN [Concomitant]

REACTIONS (11)
  - BACTERIAL INFECTION [None]
  - CYTOMEGALOVIRUS INFECTION [None]
  - DISEASE PROGRESSION [None]
  - DRUG INEFFECTIVE [None]
  - HAEMATURIA [None]
  - INCISIONAL HERNIA [None]
  - INCISIONAL HERNIA REPAIR [None]
  - LYMPHOCELE [None]
  - PNEUMONIA [None]
  - PNEUMONIA CYTOMEGALOVIRAL [None]
  - SURGERY [None]
